FAERS Safety Report 10229992 (Version 1)
Quarter: 2014Q2

REPORT INFORMATION
  Report Type: Spontaneous
  Country: US (occurrence: None)
  Receive Date: 20140610
  Receipt Date: 20140610
  Transmission Date: 20141212
  Serious: Yes (Hospitalization)
  Sender: FDA-Public Use
  Company Number: None

PATIENT
  Age: 60 Year
  Sex: Male
  Weight: 90 kg

DRUGS (1)
  1. HEPARIN [Suspect]
     Indication: PULMONARY EMBOLISM
     Route: 042
     Dates: start: 20140314, end: 20140314

REACTIONS (2)
  - Heparin-induced thrombocytopenia [None]
  - Thrombosis [None]
